FAERS Safety Report 8986982 (Version 1)
Quarter: 2012Q4

REPORT INFORMATION
  Report Type: Spontaneous
  Country: US (occurrence: None)
  Receive Date: 20121217
  Receipt Date: 20121217
  Transmission Date: 20130627
  Serious: Yes (Other)
  Sender: FDA-Public Use
  Company Number: E2B_00000512

PATIENT
  Age: 51 Year
  Sex: Female
  Weight: 90.72 kg

DRUGS (5)
  1. LISINOPRIL [Suspect]
     Indication: HYPERTENSION
  2. GLIPIZIDE [Concomitant]
  3. METFORMIN [Concomitant]
  4. PRAVASTATIN [Concomitant]
  5. ACETAMINOPHEN + HYDROCODONE [Concomitant]
     Route: 048

REACTIONS (1)
  - Coeliac disease [None]
